FAERS Safety Report 21749503 (Version 1)
Quarter: 2022Q4

REPORT INFORMATION
  Report Type: Spontaneous
  Country: CH (occurrence: CH)
  Receive Date: 20221219
  Receipt Date: 20221219
  Transmission Date: 20230113
  Serious: Yes (Hospitalization, Other)
  Sender: FDA-Public Use
  Company Number: None

PATIENT
  Age: 76 Year
  Sex: Female
  Weight: 60 kg

DRUGS (11)
  1. CYMBALTA [Suspect]
     Active Substance: DULOXETINE HYDROCHLORIDE
     Indication: Product used for unknown indication
     Dosage: 60 MG, UNK
     Route: 065
  2. ATORVASTATIN [Suspect]
     Active Substance: ATORVASTATIN
     Indication: Product used for unknown indication
     Dosage: 40 MG, UNK
     Route: 065
     Dates: end: 20221122
  3. AZATHIOPRINE [Suspect]
     Active Substance: AZATHIOPRINE
     Indication: Product used for unknown indication
     Dosage: 100 MG, UNK
     Route: 065
  4. PREGABALIN [Suspect]
     Active Substance: PREGABALIN
     Indication: Product used for unknown indication
     Dosage: 100 MG, UNK
     Route: 065
  5. BACTRIM [Suspect]
     Active Substance: SULFAMETHOXAZOLE\TRIMETHOPRIM
     Indication: Product used for unknown indication
     Dosage: 160 MG, 3 TIMES A WEEK
     Route: 065
  6. FASENRA [Concomitant]
     Active Substance: BENRALIZUMAB
     Dosage: UNK, UNKNOWN
     Route: 065
     Dates: start: 20221026, end: 20221026
  7. CALCIMAGON D3 FORTE [Concomitant]
     Dosage: UNK, UNKNOWN
     Route: 065
  8. PLAVIX [Concomitant]
     Active Substance: CLOPIDOGREL BISULFATE
     Dosage: UNK, UNKNOWN
     Route: 065
  9. NIFEDIPINE [Concomitant]
     Active Substance: NIFEDIPINE
     Dosage: UNK, UNKNOWN
     Route: 065
  10. NEBIVOLOL [Concomitant]
     Active Substance: NEBIVOLOL
     Dosage: UNK, UNKNOWN
     Route: 065
  11. NEXIUM [Concomitant]
     Active Substance: ESOMEPRAZOLE MAGNESIUM
     Dosage: UNK, UNKNOWN
     Route: 065
     Dates: end: 20221117

REACTIONS (4)
  - Pneumonia [Unknown]
  - Urinary tract infection [Unknown]
  - Cholestatic liver injury [Not Recovered/Not Resolved]
  - COVID-19 [Unknown]

NARRATIVE: CASE EVENT DATE: 20221117
